FAERS Safety Report 5935001-5 (Version None)
Quarter: 2008Q4

REPORT INFORMATION
  Report Type: 
  Country: None (occurrence: None)
  Receive Date: 20081029
  Receipt Date: 20081029
  Transmission Date: 20090506
  Serious: Yes (Other)
  Sender: FDA-Public Use
  Company Number: None

PATIENT
  Age: 33 Year
  Sex: Female
  Weight: 92.0802 kg

DRUGS (4)
  1. WELLBUTRIN SR [Suspect]
     Indication: ANXIETY
  2. LEXAPRO [Suspect]
     Indication: DEPRESSION
  3. SERTRALINE [Suspect]
  4. PAROXETINE HCL [Suspect]

REACTIONS (4)
  - DRUG INTOLERANCE [None]
  - HYPERHIDROSIS [None]
  - NAUSEA [None]
  - URTICARIA [None]
